FAERS Safety Report 19928023 (Version 3)
Quarter: 2021Q4

REPORT INFORMATION
  Report Type: Spontaneous
  Country: FR (occurrence: FR)
  Receive Date: 20211007
  Receipt Date: 20211017
  Transmission Date: 20220303
  Serious: Yes (Other)
  Sender: FDA-Public Use
  Company Number: FR-TEVA-2021-FR-1962292

PATIENT
  Age: 45 Year
  Sex: Male

DRUGS (1)
  1. PIROXICAM [Suspect]
     Active Substance: PIROXICAM
     Dates: start: 202109

REACTIONS (9)
  - Swelling [Unknown]
  - Blister [Recovering/Resolving]
  - Hypersensitivity [Recovering/Resolving]
  - Blister [Recovering/Resolving]
  - Peripheral swelling [Unknown]
  - Erythema [Not Recovered/Not Resolved]
  - Oropharyngeal pain [Not Recovered/Not Resolved]
  - Skin irritation [Unknown]
  - Adverse event [Not Recovered/Not Resolved]
